FAERS Safety Report 8978422 (Version 1)
Quarter: 2012Q4

REPORT INFORMATION
  Report Type: Report from Study
  Country: NL (occurrence: NL)
  Receive Date: 20121220
  Receipt Date: 20121220
  Transmission Date: 20130627
  Serious: Yes (Hospitalization, Other)
  Sender: FDA-Public Use
  Company Number: NL-BAXTER-2012BAX027343

PATIENT
  Age: 68 Year
  Sex: Male
  Weight: 69 kg

DRUGS (12)
  1. ENDOXAN I.V., POEDER VOOR OPLOSSING VOOR INJECTIE 200, 500, 1000 MG [Suspect]
     Indication: DIFFUSE LARGE B-CELL LYMPHOMA
     Route: 042
     Dates: start: 20090508, end: 20090605
  2. ENDOXAN I.V., POEDER VOOR OPLOSSING VOOR INJECTIE 200, 500, 1000 MG [Suspect]
     Route: 042
     Dates: end: 20090703
  3. RITUXIMAB [Suspect]
     Indication: DIFFUSE LARGE B-CELL LYMPHOMA
     Route: 042
     Dates: start: 20090509, end: 20090612
  4. RITUXIMAB [Suspect]
     Route: 042
     Dates: end: 20090703
  5. PREDNISONE [Suspect]
     Indication: DIFFUSE LARGE B-CELL LYMPHOMA
     Route: 048
     Dates: start: 20090504, end: 20090609
  6. PREDNISONE [Suspect]
     Route: 048
     Dates: end: 20090707
  7. DOXORUBICIN [Suspect]
     Indication: DIFFUSE LARGE B-CELL LYMPHOMA
     Route: 042
     Dates: start: 20090508, end: 20090605
  8. DOXORUBICIN [Suspect]
     Route: 042
     Dates: end: 20090703
  9. VINCRISTINE [Suspect]
     Indication: DIFFUSE LARGE B-CELL LYMPHOMA
     Route: 042
     Dates: start: 20090508, end: 20090605
  10. VINCRISTINE [Suspect]
     Route: 042
     Dates: end: 20090703
  11. G-CSF [Suspect]
     Indication: DIFFUSE LARGE B-CELL LYMPHOMA
     Route: 058
     Dates: start: 20090509, end: 20090606
  12. G-CSF [Suspect]
     Route: 058
     Dates: end: 20090704

REACTIONS (3)
  - Urinary tract infection [Recovered/Resolved]
  - Febrile neutropenia [Unknown]
  - Urinary tract infection [Recovered/Resolved]
